FAERS Safety Report 5630676-2 (Version None)
Quarter: 2008Q1

REPORT INFORMATION
  Report Type: 
  Country: None (occurrence: None)
  Receive Date: 20080213
  Receipt Date: 20080206
  Transmission Date: 20080703
  Serious: Yes (Other)
  Sender: FDA-Public Use
  Company Number: CHPA2008US02372

PATIENT
  Sex: Female

DRUGS (1)
  1. EXCEDRIN PM (NCH)(ACETAMINOPHEN (PARACETAMOL), DIPHENYDRAMINE HYDROCHL [Suspect]
     Dosage: 6 DF, ONCE/SINGLE, ORAL
     Route: 048

REACTIONS (2)
  - NO ADVERSE EVENT [None]
  - OVERDOSE [None]
